FAERS Safety Report 6416064-X (Version None)
Quarter: 2009Q4

REPORT INFORMATION
  Report Type: 
  Country: None (occurrence: None)
  Receive Date: 20091027
  Receipt Date: 20091014
  Transmission Date: 20100525
  Serious: Yes (Hospitalization)
  Sender: FDA-Public Use
  Company Number: US-ELI_LILLY_AND_COMPANY-US200910003386

PATIENT
  Sex: Male

DRUGS (3)
  1. ZYPREXA ZYDIS [Suspect]
     Indication: DEPRESSION
     Dosage: 10 MG, DAILY (1/D)
     Dates: start: 20040101
  2. ZYPREXA ZYDIS [Suspect]
     Dosage: 1 D/F, DAILY (1/D)
     Dates: end: 20060201
  3. RISPERDAL [Concomitant]

REACTIONS (8)
  - ABDOMINAL PAIN [None]
  - DIZZINESS [None]
  - HEADACHE [None]
  - HYPERHIDROSIS [None]
  - MALAISE [None]
  - MENTAL DISORDER [None]
  - NAUSEA [None]
  - VOMITING [None]
